FAERS Safety Report 4780653-9 (Version None)
Quarter: 2005Q3

REPORT INFORMATION
  Report Type: 
  Country: None (occurrence: None)
  Receive Date: 20050926
  Receipt Date: 20050912
  Transmission Date: 20060218
  Serious: Yes (Other)
  Sender: FDA-Public Use
  Company Number: 2005128567

PATIENT
  Sex: Female
  Weight: 77.1115 kg

DRUGS (11)
  1. DETROL LA [Suspect]
     Indication: HYPERTONIC BLADDER
     Dosage: 4 MG (4 MG, 1 IN 1 D), ORAL
     Route: 048
     Dates: start: 20020101
  2. NORVASC [Concomitant]
  3. DIAZEPAM [Concomitant]
  4. QUININE SULFATE [Concomitant]
  5. COZAAR [Concomitant]
  6. XANAX [Concomitant]
  7. VITAMIN E [Concomitant]
  8. CENTRUM (MINERAL NOS, VITAMINS NOS) [Concomitant]
  9. POTASSIUM (POTASSIUM) [Concomitant]
  10. OSTEO BI-FLEX (CHONDROITIN SULFATE, CLUCOSAMINE HYDROCHLORIDE) [Concomitant]
  11. CITRACAL (CALCIUM CITRATE) [Concomitant]

REACTIONS (2)
  - EYELID PTOSIS [None]
  - GLAUCOMA [None]
